FAERS Safety Report 11434035 (Version 1)
Quarter: 2015Q3

REPORT INFORMATION
  Report Type: Spontaneous
  Country: PL (occurrence: PL)
  Receive Date: 20150831
  Receipt Date: 20150831
  Transmission Date: 20151125
  Serious: Yes (Death, Hospitalization, Other)
  Sender: FDA-Public Use
  Company Number: PL-TEVA-589321ISR

PATIENT
  Age: 33 Year
  Sex: Male

DRUGS (2)
  1. CICLOSPORIN [Suspect]
     Active Substance: CYCLOSPORINE
     Route: 065
  2. STEROIDS [Concomitant]
     Active Substance: UNSPECIFIED INGREDIENT
     Route: 065

REACTIONS (6)
  - Sepsis [Unknown]
  - Anaemia [Unknown]
  - Multi-organ failure [Fatal]
  - Thrombocytopenia [Unknown]
  - Aspergillus infection [Fatal]
  - Acute kidney injury [Unknown]
